FAERS Safety Report 5621087-4 (Version None)
Quarter: 2008Q1

REPORT INFORMATION
  Report Type: 
  Country: None (occurrence: None)
  Receive Date: 20080114
  Receipt Date: 20070109
  Transmission Date: 20080703
  Serious: Yes (Other)
  Sender: FDA-Public Use
  Company Number: A03200700295

PATIENT
  Age: 71 Year
  Sex: Female

DRUGS (3)
  1. PLAVIX [Suspect]
     Indication: MYOCARDIAL INFARCTION
     Dosage: 75 MG QD - ORAL
     Route: 048
  2. VITAMIN B-12 [Concomitant]
  3. CENTRUM SILVER [Concomitant]

REACTIONS (5)
  - ARTERIAL DISORDER [None]
  - CARDIAC VALVE DISEASE [None]
  - FATIGUE [None]
  - MEMORY IMPAIRMENT [None]
  - TRANSIENT ISCHAEMIC ATTACK [None]
